FAERS Safety Report 7901952-5 (Version None)
Quarter: 2011Q4

REPORT INFORMATION
  Report Type: 
  Country: None (occurrence: None)
  Receive Date: 20111108
  Receipt Date: 20111030
  Transmission Date: 20120403
  Serious: Yes (Hospitalization)
  Sender: FDA-Public Use
  Company Number: NZ-B.I. PHARMACEUTICALS,INC./RIDGEFIELD-2011-AU-01276AU

PATIENT
  Sex: Male
  Weight: 130 kg

DRUGS (5)
  1. ACETYLSALICYLIC ACID SRT [Concomitant]
     Dosage: 100 MG
     Route: 048
  2. DIGOXIN [Concomitant]
     Dosage: 1.9643 MG
     Route: 048
  3. LISINOPRIL [Concomitant]
     Dosage: 5 MG
     Route: 048
  4. PRADAXA [Suspect]
     Indication: ATRIAL FIBRILLATION
     Dosage: 220 MG
     Dates: start: 20110701, end: 20110805
  5. ALLOPURINOL [Concomitant]
     Dosage: 300 MG
     Route: 048

REACTIONS (4)
  - HAEMATOMA [None]
  - DRUG INEFFECTIVE [None]
  - ARTERIAL THROMBOSIS LIMB [None]
  - PAIN IN EXTREMITY [None]
